FAERS Safety Report 4421895-1 (Version None)
Quarter: 2004Q3

REPORT INFORMATION
  Report Type: 
  Country: None (occurrence: None)
  Receive Date: 20040805
  Receipt Date: 20040805
  Transmission Date: 20050211
  Serious: Yes (Other)
  Sender: FDA-Public Use
  Company Number: None

PATIENT
  Age: 69 Year
  Sex: Male
  Weight: 80.7 kg

DRUGS (5)
  1. OXYBUTYNIN CHLORIDE [Suspect]
  2. LEVOCABASTINE HCL [Concomitant]
  3. SIMVASTATIN [Concomitant]
  4. ALBUTEROL SULFATE AND IPRATROPIUM BROMIDE [Concomitant]
  5. ADALAT CC [Concomitant]

REACTIONS (2)
  - RASH [None]
  - TACHYCARDIA [None]
